FAERS Safety Report 16120981 (Version 1)
Quarter: 2019Q1

REPORT INFORMATION
  Report Type: Spontaneous
  Country: US (occurrence: US)
  Receive Date: 20190327
  Receipt Date: 20190327
  Transmission Date: 20190418
  Serious: No
  Sender: FDA-Public Use
  Company Number: US-GLAXOSMITHKLINE-US2019050952

PATIENT
  Age: 89 Year
  Sex: Male

DRUGS (2)
  1. ABREVA [Suspect]
     Active Substance: DOCOSANOL
     Indication: ORAL HERPES
     Dosage: UNK
     Route: 062
     Dates: start: 20190314, end: 20190319
  2. ABREVA [Suspect]
     Active Substance: DOCOSANOL
     Dosage: UNK
     Route: 062
     Dates: start: 20190314, end: 20190319

REACTIONS (2)
  - Incorrect product administration duration [Unknown]
  - Product use issue [Unknown]

NARRATIVE: CASE EVENT DATE: 20190314
